FAERS Safety Report 5924262-4 (Version None)
Quarter: 2008Q4

REPORT INFORMATION
  Report Type: 
  Country: None (occurrence: None)
  Receive Date: 20081020
  Receipt Date: 20081008
  Transmission Date: 20090506
  Serious: Yes (Hospitalization, Other)
  Sender: FDA-Public Use
  Company Number: US-PFIZER INC-2008085593

PATIENT
  Sex: Male
  Weight: 100 kg

DRUGS (10)
  1. CHANTIX [Suspect]
     Indication: SMOKING CESSATION THERAPY
     Dates: start: 20070101, end: 20080101
  2. OXYCONTIN [Suspect]
     Indication: NEURALGIA
     Dosage: DAILY DOSE:100MG
     Dates: start: 20060101
  3. OXYCODONE HCL [Suspect]
     Indication: NEURALGIA
     Dates: start: 20060101
  4. METOPROLOL TARTRATE [Concomitant]
     Indication: HYPERTENSION
  5. METOPROLOL TARTRATE [Concomitant]
     Indication: CARDIAC DISORDER
  6. NEXIUM [Concomitant]
     Indication: GASTRIC DISORDER
  7. LAXATIVES [Concomitant]
  8. AMBIEN [Concomitant]
  9. LORAZEPAM [Concomitant]
  10. REGLAN [Concomitant]
     Indication: NAUSEA

REACTIONS (15)
  - ANXIETY [None]
  - BALANCE DISORDER [None]
  - BLEPHAROSPASM [None]
  - EMPHYSEMA [None]
  - FEAR [None]
  - HYPERHIDROSIS [None]
  - ILL-DEFINED DISORDER [None]
  - INCORRECT DOSE ADMINISTERED [None]
  - LOSS OF CONSCIOUSNESS [None]
  - LOWER LIMB FRACTURE [None]
  - MYOCARDIAL INFARCTION [None]
  - NAUSEA [None]
  - OSTEONECROSIS [None]
  - PACEMAKER GENERATED RHYTHM [None]
  - PRESYNCOPE [None]
